FAERS Safety Report 12717660 (Version 1)
Quarter: 2016Q3

REPORT INFORMATION
  Report Type: Spontaneous
  Country: US (occurrence: US)
  Receive Date: 20160906
  Receipt Date: 20160906
  Transmission Date: 20161109
  Serious: No
  Sender: FDA-Public Use
  Company Number: US-BRISTOL-MYERS SQUIBB COMPANY-BMS-2016-072302

PATIENT
  Sex: Female

DRUGS (2)
  1. OPDIVO [Suspect]
     Active Substance: NIVOLUMAB
     Indication: HEPATIC CANCER
     Route: 042
  2. YERVOY [Suspect]
     Active Substance: IPILIMUMAB
     Indication: HEPATIC CANCER
     Route: 042

REACTIONS (9)
  - Abdominal pain [Unknown]
  - Hyperhidrosis [Unknown]
  - Chills [Unknown]
  - Off label use [Unknown]
  - Bone pain [Unknown]
  - Hepatic pain [Unknown]
  - Adverse event [Unknown]
  - Arthralgia [Unknown]
  - Myalgia [Unknown]
